FAERS Safety Report 13213854 (Version 1)
Quarter: 2017Q1

REPORT INFORMATION
  Report Type: Spontaneous
  Country: US (occurrence: US)
  Receive Date: 20170210
  Receipt Date: 20170210
  Transmission Date: 20170428
  Serious: No
  Sender: FDA-Public Use
  Company Number: US-GALDERMA-US17000123

PATIENT
  Age: 18 Year
  Sex: Female

DRUGS (1)
  1. EPIDUO FORTE [Suspect]
     Active Substance: ADAPALENE\BENZOYL PEROXIDE
     Dosage: 0,3%-2,5%
     Route: 061

REACTIONS (4)
  - Swelling face [Unknown]
  - Application site pruritus [Unknown]
  - Rash papular [Unknown]
  - Application site erythema [Unknown]
